FAERS Safety Report 23861384 (Version 20)
Quarter: 2025Q2

REPORT INFORMATION
  Report Type: Report from Study
  Country: US (occurrence: US)
  Receive Date: 20240516
  Receipt Date: 20250623
  Transmission Date: 20250717
  Serious: Yes (Other)
  Sender: TAKEDA
  Company Number: US-TAKEDA-2022TUS052590

PATIENT
  Age: 45 Year
  Sex: Female

DRUGS (12)
  1. LANADELUMAB [Suspect]
     Active Substance: LANADELUMAB
     Indication: Immune system disorder
     Dosage: 300 MILLIGRAM, Q2WEEKS
     Dates: start: 20220422
  2. LANADELUMAB [Suspect]
     Active Substance: LANADELUMAB
     Indication: Asthma
     Dosage: 2 MILLILITER, Q2WEEKS
     Dates: start: 20220721
  3. LANADELUMAB [Suspect]
     Active Substance: LANADELUMAB
     Indication: Idiopathic urticaria
     Dosage: 300 MILLIGRAM, Q2WEEKS
     Dates: start: 20220724
  4. LANADELUMAB [Suspect]
     Active Substance: LANADELUMAB
     Dosage: 300 MILLIGRAM, Q2WEEKS
     Dates: start: 20220725
  5. LANADELUMAB [Suspect]
     Active Substance: LANADELUMAB
     Dosage: 300 MILLIGRAM, Q2WEEKS
     Dates: start: 20220726
  6. LANADELUMAB [Suspect]
     Active Substance: LANADELUMAB
     Dosage: 300 MILLIGRAM, Q2WEEKS
     Dates: start: 202207
  7. LANADELUMAB [Suspect]
     Active Substance: LANADELUMAB
     Dosage: 300 MILLIGRAM, Q2WEEKS
     Dates: start: 20221007
  8. XOLAIR [Suspect]
     Active Substance: OMALIZUMAB
     Indication: Asthma
     Dosage: 2 DOSAGE FORM, Q2WEEKS
  9. XOLAIR [Suspect]
     Active Substance: OMALIZUMAB
     Indication: Idiopathic urticaria
  10. XOLAIR [Suspect]
     Active Substance: OMALIZUMAB
     Indication: Migraine
  11. ICATIBANT ACETATE [Concomitant]
     Active Substance: ICATIBANT ACETATE
  12. RINVOQ [Concomitant]
     Active Substance: UPADACITINIB

REACTIONS (9)
  - Crohn^s disease [Unknown]
  - Stress [Unknown]
  - Pruritus [Unknown]
  - Weight decreased [Unknown]
  - Weight increased [Unknown]
  - Abdominal pain [Unknown]
  - Product dose omission issue [Unknown]
  - Hereditary angioedema [Recovered/Resolved]
  - Injection site erythema [Unknown]

NARRATIVE: CASE EVENT DATE: 20220729
